FAERS Safety Report 10332042 (Version 2)
Quarter: 2014Q3

REPORT INFORMATION
  Report Type: Spontaneous
  Country: US (occurrence: US)
  Receive Date: 20140722
  Receipt Date: 20140722
  Transmission Date: 20150326
  Serious: No
  Sender: FDA-Public Use
  Company Number: US-UNITED THERAPEUTICS-UTC-036541

PATIENT
  Sex: Female
  Weight: 50 kg

DRUGS (3)
  1. TYVASO [Suspect]
     Active Substance: TREPROSTINIL
     Dates: start: 20130529
  2. TRACLEER [Concomitant]
     Active Substance: BOSENTAN\BOSENTAN MONOHYDRATE
     Dates: start: 2005
  3. ADCIRCA [Concomitant]
     Active Substance: TADALAFIL
     Dates: start: 201305

REACTIONS (4)
  - Headache [Not Recovered/Not Resolved]
  - Viral infection [Unknown]
  - Dysphonia [Unknown]
  - Vocal cord disorder [Not Recovered/Not Resolved]

NARRATIVE: CASE EVENT DATE: 2013
